FAERS Safety Report 9716665 (Version 1)
Quarter: 2013Q4

REPORT INFORMATION
  Report Type: Spontaneous
  Country: AT (occurrence: AT)
  Receive Date: 20131127
  Receipt Date: 20131127
  Transmission Date: 20140711
  Serious: Yes (Death, Other)
  Sender: FDA-Public Use
  Company Number: AT-PFIZER INC-2013334250

PATIENT
  Age: 33 Year
  Sex: Female

DRUGS (9)
  1. CELECOXIB [Suspect]
     Indication: BREAST CANCER FEMALE
     Dosage: 400 MG, DAILY
     Dates: start: 200902
  2. CELECOXIB [Suspect]
     Dosage: 200 MG, 2X/DAY
  3. PACLITAXEL [Suspect]
     Indication: BREAST CANCER FEMALE
     Dosage: UNK
     Dates: start: 200912
  4. CARBOPLATIN [Suspect]
     Indication: BREAST CANCER FEMALE
     Dosage: UNK
     Dates: start: 200912
  5. CAPECITABINE [Suspect]
     Indication: BREAST CANCER FEMALE
     Dosage: 3000 MG, DAILY
     Dates: start: 200902
  6. CAPECITABINE [Suspect]
     Dosage: 500 MG, 2X/DAY
  7. BEVACIZUMAB [Suspect]
     Indication: BREAST CANCER FEMALE
     Dosage: 15 MG/KG
     Dates: start: 200902
  8. BEVACIZUMAB [Suspect]
     Dosage: 10 MG/KG,
  9. LAPATINIB [Suspect]
     Indication: BREAST CANCER FEMALE
     Dosage: 250 MG, 2X/DAY

REACTIONS (4)
  - Off label use [Fatal]
  - Second primary malignancy [Fatal]
  - Malignant melanoma [Fatal]
  - Metastases to central nervous system [Fatal]
